FAERS Safety Report 21300665 (Version 1)
Quarter: 2022Q3

REPORT INFORMATION
  Report Type: Other
  Country: US (occurrence: None)
  Receive Date: 20220907
  Receipt Date: 20220907
  Transmission Date: 20221026
  Serious: Yes (Other)
  Sender: FDA-Public Use
  Company Number: US-ROCHE-3093335

PATIENT
  Sex: Female
  Weight: 81.8 kg

DRUGS (8)
  1. OCREVUS [Suspect]
     Active Substance: OCRELIZUMAB
     Indication: Multiple sclerosis
     Route: 042
     Dates: start: 20200603
  2. OCREVUS [Suspect]
     Active Substance: OCRELIZUMAB
     Indication: Relapsing-remitting multiple sclerosis
     Route: 065
     Dates: start: 201710
  3. CELEXA [Concomitant]
     Active Substance: CITALOPRAM HYDROBROMIDE
     Route: 048
     Dates: start: 20201110
  4. AMPYRA [Concomitant]
     Active Substance: DALFAMPRIDINE
     Route: 048
  5. METHYLPREDNISOLONE [Concomitant]
     Active Substance: METHYLPREDNISOLONE
     Route: 042
     Dates: start: 20200518
  6. SEROQUEL [Concomitant]
     Active Substance: QUETIAPINE FUMARATE
     Route: 048
  7. ACETAMINOPHEN [Concomitant]
     Active Substance: ACETAMINOPHEN
  8. DIPHENHYDRAMINE [Concomitant]
     Active Substance: DIPHENHYDRAMINE

REACTIONS (36)
  - Trigeminal neuralgia [Unknown]
  - Facial pain [Unknown]
  - Electric shock sensation [Unknown]
  - Tooth disorder [Unknown]
  - Anxiety [Unknown]
  - Mental disorder [Unknown]
  - Temperature intolerance [Unknown]
  - Depression [Unknown]
  - Poor quality sleep [Unknown]
  - Weight fluctuation [Unknown]
  - Balance disorder [Unknown]
  - Fatigue [Unknown]
  - Pyrexia [Unknown]
  - Fine motor skill dysfunction [Unknown]
  - Asthenia [Unknown]
  - Night sweats [Unknown]
  - Memory impairment [Unknown]
  - Micturition urgency [Unknown]
  - Rash [Unknown]
  - Pruritus [Unknown]
  - Scab [Unknown]
  - Herpes zoster [Unknown]
  - Cough [Unknown]
  - Vision blurred [Unknown]
  - Speech disorder [Unknown]
  - Gait disturbance [Unknown]
  - Pollakiuria [Unknown]
  - Urinary retention [Unknown]
  - Vitamin D deficiency [Unknown]
  - Neurogenic bladder [Unknown]
  - Insomnia [Unknown]
  - Muscle fatigue [Unknown]
  - Pain of skin [Unknown]
  - Flushing [Unknown]
  - Dyspnoea [Unknown]
  - Visual impairment [Unknown]
